FAERS Safety Report 5689583-1 (Version None)
Quarter: 2008Q1

REPORT INFORMATION
  Report Type: 
  Country: None (occurrence: None)
  Receive Date: 20080328
  Receipt Date: 20080317
  Transmission Date: 20080703
  Serious: Yes (Hospitalization)
  Sender: FDA-Public Use
  Company Number: 2008PL000037

PATIENT
  Age: 62 Year
  Sex: Female

DRUGS (2)
  1. AZATHIOPRINE [Suspect]
     Indication: IMMUNOSUPPRESSANT DRUG THERAPY
     Dosage: PO
     Route: 048
  2. PREDNISONE [Concomitant]

REACTIONS (6)
  - BLOOD PRESSURE INCREASED [None]
  - CHRONIC ALLOGRAFT NEPHROPATHY [None]
  - HAEMODIALYSIS [None]
  - HYDROCEPHALUS [None]
  - MENINGITIS CRYPTOCOCCAL [None]
  - NEPHROPATHY TOXIC [None]
